FAERS Safety Report 5798542-X (Version None)
Quarter: 2008Q3

REPORT INFORMATION
  Report Type: 
  Country: None (occurrence: None)
  Receive Date: 20080702
  Receipt Date: 20080624
  Transmission Date: 20090109
  Serious: Yes (Hospitalization, Other)
  Sender: FDA-Public Use
  Company Number: GB-ROCHE-458876

PATIENT
  Sex: Male
  Weight: 92 kg

DRUGS (5)
  1. ISOTRETINOIN [Suspect]
     Indication: ACNE
     Route: 048
     Dates: start: 19891215
  2. ISOTRETINOIN [Suspect]
     Route: 048
     Dates: start: 20010215, end: 20010331
  3. ISOTRETINOIN [Suspect]
     Route: 048
     Dates: start: 20060331, end: 20060518
  4. MIRTAZAPINE [Concomitant]
     Indication: ANTIDEPRESSANT THERAPY
  5. ARIPIPRAZOLE [Concomitant]
     Indication: ANTIDEPRESSANT THERAPY

REACTIONS (4)
  - DEPRESSION [None]
  - LIVER FUNCTION TEST ABNORMAL [None]
  - PSYCHOTIC DISORDER [None]
  - SCHIZOPHRENIA, PARANOID TYPE [None]
